FAERS Safety Report 4370848-0 (Version None)
Quarter: 2004Q2

REPORT INFORMATION
  Report Type: 
  Country: None (occurrence: None)
  Receive Date: 20040601
  Receipt Date: 20040521
  Transmission Date: 20050107
  Serious: Yes (Hospitalization)
  Sender: FDA-Public Use
  Company Number: 04P-062-0258986-01

PATIENT
  Age: 53 Year
  Sex: Female
  Weight: 58 kg

DRUGS (7)
  1. HUMIRA [Suspect]
     Indication: RHEUMATOID ARTHRITIS
     Dosage: 40 MG, 1 IN 1 WK, SUBCUTANEOUS
     Route: 058
     Dates: start: 20031017
  2. ROFECOXIB [Concomitant]
  3. PREDNISOLONE [Concomitant]
  4. METHOTREXATE [Concomitant]
  5. FOLIC ACID [Concomitant]
  6. METOPROLOL TARTRATE [Concomitant]
  7. RAMIPRIL [Concomitant]

REACTIONS (2)
  - ANASTOMOTIC HAEMORRHAGE [None]
  - GASTROINTESTINAL HAEMORRHAGE [None]
